FAERS Safety Report 4804167-2 (Version None)
Quarter: 2005Q4

REPORT INFORMATION
  Report Type: 
  Country: None (occurrence: None)
  Receive Date: 20051014
  Receipt Date: 20051007
  Transmission Date: 20060501
  Serious: Yes (Hospitalization, Other)
  Sender: FDA-Public Use
  Company Number: KII-2005-0018911

PATIENT
  Age: 23 Year
  Sex: Female

DRUGS (4)
  1. OXYCONTIN [Suspect]
     Indication: INTENTIONAL DRUG MISUSE
     Dosage: INTRAVENOUS
     Route: 042
  2. COCAINE (COCAINE) [Suspect]
     Indication: INTENTIONAL DRUG MISUSE
  3. TETRAHYDROCANNABINOL (TETRAHYDROCANNABINOL) [Suspect]
     Indication: INTENTIONAL DRUG MISUSE
  4. BENZODIAZEPINE DERIVATIVES () [Suspect]
     Indication: INTENTIONAL DRUG MISUSE

REACTIONS (8)
  - APNOEA [None]
  - BLOOD POTASSIUM DECREASED [None]
  - COMA [None]
  - HEART RATE INCREASED [None]
  - MEMORY IMPAIRMENT [None]
  - POLYSUBSTANCE ABUSE [None]
  - RESPIRATORY RATE INCREASED [None]
  - SOMNOLENCE [None]
